FAERS Safety Report 5146842-9 (Version None)
Quarter: 2006Q4

REPORT INFORMATION
  Report Type: 
  Country: None (occurrence: None)
  Receive Date: 20061109
  Receipt Date: 20061030
  Transmission Date: 20070319
  Serious: Yes (Other)
  Sender: FDA-Public Use
  Company Number: US-NOVOPROD-258240

PATIENT
  Age: 54 None
  Sex: Female
  Weight: 54 kg

DRUGS (2)
  1. VAGIFEM [Suspect]
     Indication: ATROPHIC VULVOVAGINITIS
     Dosage: 1 TAB, QD X 2 WEEKS
     Route: 067
     Dates: start: 20060301, end: 20060301
  2. VAGIFEM [Suspect]
     Dosage: 1 TAB, BIW
     Route: 067
     Dates: start: 20060301, end: 20061028

REACTIONS (3)
  - ABDOMINAL PAIN [None]
  - BLOOD COUNT ABNORMAL [None]
  - LYMPHOMA [None]
